FAERS Safety Report 5236495-3 (Version None)
Quarter: 2007Q1

REPORT INFORMATION
  Report Type: 
  Country: None (occurrence: None)
  Receive Date: 20061208
  Receipt Date: 20060529
  Transmission Date: 20070707
  Serious: Yes (Other)
  Sender: FDA-Public Use
  Company Number: 2006UW12552

PATIENT
  Age: 47 Year
  Sex: Female

DRUGS (3)
  1. CRESTOR [Suspect]
     Dosage: 5 MG PO
     Route: 048
  2. FISH OIL [Concomitant]
  3. PREMARIN [Concomitant]

REACTIONS (2)
  - LYMPHADENOPATHY [None]
  - ORAL SOFT TISSUE DISORDER [None]
